FAERS Safety Report 13489143 (Version 1)
Quarter: 2017Q2

REPORT INFORMATION
  Report Type: Spontaneous
  Country: US (occurrence: US)
  Receive Date: 20170426
  Receipt Date: 20170426
  Transmission Date: 20170830
  Serious: Yes (Hospitalization)
  Sender: FDA-Public Use
  Company Number: None

PATIENT
  Age: 26 Year
  Sex: Female
  Weight: 54 kg

DRUGS (4)
  1. REMICADE [Suspect]
     Active Substance: INFLIXIMAB
     Indication: COLITIS ULCERATIVE
     Dosage: ?          QUANTITY:1 INJECTION(S);OTHER FREQUENCY:WEEK 0, AND 2;?INTRAVENOUS (NOT OTHERWISE SPECIFIED) ?
     Route: 042
     Dates: start: 20170321, end: 20170405
  2. PREDNISONE. [Concomitant]
     Active Substance: PREDNISONE
  3. AZATHIOPRINE. [Concomitant]
     Active Substance: AZATHIOPRINE
  4. LIALDA [Concomitant]
     Active Substance: MESALAMINE

REACTIONS (6)
  - Oropharyngeal pain [None]
  - Arthralgia [None]
  - Pain in jaw [None]
  - Arthritis [None]
  - Pain in extremity [None]
  - Serum sickness [None]

NARRATIVE: CASE EVENT DATE: 20170405
